FAERS Safety Report 23172225 (Version 1)
Quarter: 2023Q4

REPORT INFORMATION
  Report Type: Spontaneous
  Country: IT (occurrence: IT)
  Receive Date: 20231110
  Receipt Date: 20231110
  Transmission Date: 20240110
  Serious: Yes (Life-Threatening, Hospitalization)
  Sender: FDA-Public Use
  Company Number: IT-MINISAL02-937333

PATIENT
  Age: 32 Year
  Sex: Male

DRUGS (5)
  1. OLANZAPINE [Suspect]
     Active Substance: OLANZAPINE
     Indication: Product used for unknown indication
     Dosage: UNK
     Route: 048
  2. LYRICA [Suspect]
     Active Substance: PREGABALIN
     Indication: Product used for unknown indication
     Dosage: UNK
     Route: 048
  3. LITHIUM SULFATE [Suspect]
     Active Substance: LITHIUM SULFATE
     Indication: Product used for unknown indication
     Dosage: UNK
     Route: 048
  4. CLOTHIAPINE [Suspect]
     Active Substance: CLOTHIAPINE
     Indication: Product used for unknown indication
     Dosage: UNK
     Route: 048
  5. VALPROATE SODIUM [Suspect]
     Active Substance: VALPROATE SODIUM
     Indication: Product used for unknown indication
     Dosage: UNK
     Route: 048

REACTIONS (7)
  - Hypokalaemia [Unknown]
  - General physical health deterioration [Unknown]
  - Coma [Unknown]
  - Neuroleptic malignant syndrome [Unknown]
  - Hyponatraemia [Unknown]
  - Disorientation [Unknown]
  - Hyperpyrexia [Unknown]

NARRATIVE: CASE EVENT DATE: 20230715
